FAERS Safety Report 7441393-0 (Version None)
Quarter: 2011Q2

REPORT INFORMATION
  Report Type: 
  Country: None (occurrence: None)
  Receive Date: 20110412
  Receipt Date: 20110329
  Transmission Date: 20111010
  Serious: Yes (Hospitalization)
  Sender: FDA-Public Use
  Company Number: 14938

PATIENT
  Sex: Female
  Weight: 111.5849 kg

DRUGS (8)
  1. PREDNISONE [Concomitant]
  2. GLIPIZIDE [Concomitant]
  3. GLASSIA [Suspect]
     Indication: ALPHA-1 ANTI-TRYPSIN DEFICIENCY
     Dosage: 1600MG, ONCE A WEEK, IV
     Route: 042
     Dates: start: 20110301, end: 20110308
  4. ZANTAC [Concomitant]
  5. OXYGEN 2L [Concomitant]
  6. ALBUTEROL [Concomitant]
  7. ULTRAM [Concomitant]
  8. CALCIUM [Concomitant]

REACTIONS (5)
  - REFUSAL OF TREATMENT BY PATIENT [None]
  - PRODUCTIVE COUGH [None]
  - RASH [None]
  - DYSPNOEA [None]
  - ASTHMA [None]
